FAERS Safety Report 24773116 (Version 1)
Quarter: 2024Q4

REPORT INFORMATION
  Report Type: Spontaneous
  Country: CH (occurrence: CH)
  Receive Date: 20241225
  Receipt Date: 20241225
  Transmission Date: 20250114
  Serious: Yes (Hospitalization)
  Sender: ABBVIE
  Company Number: CH-ABBVIE-6057895

PATIENT
  Age: 78 Year
  Sex: Male

DRUGS (10)
  1. RINVOQ [Suspect]
     Active Substance: UPADACITINIB
     Indication: Rheumatoid arthritis
     Route: 048
  2. TORSEMIDE [Concomitant]
     Active Substance: TORSEMIDE
     Indication: Product used for unknown indication
     Dosage: DOSE NOT CHANGED
  3. Co Valsartan [Concomitant]
     Indication: Product used for unknown indication
     Dosage: DOSE NOT CHANGED?CO VALSARTAN ABDI
  4. TAMSULOSIN T [Concomitant]
     Indication: Product used for unknown indication
     Dosage: DOSE NOT CHANGED
  5. PANTOPRAZOLE SODIUM [Concomitant]
     Active Substance: PANTOPRAZOLE SODIUM
     Indication: Pneumonia
     Dosage: DOSE NOT CHANGED
  6. LERCANIDIPINE HYDROCHLORIDE [Concomitant]
     Active Substance: LERCANIDIPINE HYDROCHLORIDE
     Indication: Product used for unknown indication
     Dosage: DOSE NOT CHANGED
  7. ALLOPURINOL [Concomitant]
     Active Substance: ALLOPURINOL
     Indication: Product used for unknown indication
     Dosage: DOSE NOT CHANGED
  8. CELECOXIB SPIRIG HC [Concomitant]
     Indication: Product used for unknown indication
     Dosage: DOSE NOT CHANGED
  9. JARDIANCE [Concomitant]
     Active Substance: EMPAGLIFLOZIN
     Indication: Product used for unknown indication
     Dosage: DOSE NOT CHANGED
  10. METOPROLOL [Concomitant]
     Active Substance: METOPROLOL
     Indication: Product used for unknown indication
     Dosage: DOSE NOT CHANGED?METOPROLOL SUCCINATE

REACTIONS (10)
  - COVID-19 pneumonia [Recovered/Resolved]
  - Pneumonia [Recovered/Resolved]
  - Dyspnoea [Unknown]
  - Coronary artery disease [Unknown]
  - Atrioventricular block [Unknown]
  - Dyslipidaemia [Unknown]
  - Chronic kidney disease [Unknown]
  - Obesity [Unknown]
  - Hypertension [Unknown]
  - Diabetes mellitus [Unknown]

NARRATIVE: CASE EVENT DATE: 20231104
